FAERS Safety Report 10435245 (Version 1)
Quarter: 2014Q3

REPORT INFORMATION
  Report Type: Spontaneous
  Country: CN (occurrence: CN)
  Receive Date: 20140907
  Receipt Date: 20140907
  Transmission Date: 20150326
  Serious: Yes (Other)
  Sender: FDA-Public Use
  Company Number: CN-ROCHE-1458653

PATIENT
  Sex: Male

DRUGS (2)
  1. PEGASYS [Suspect]
     Active Substance: PEGINTERFERON ALFA-2A
     Indication: HEPATITIS C
     Route: 058
     Dates: start: 20140516
  2. RIBAVIRIN. [Suspect]
     Active Substance: RIBAVIRIN
     Indication: HEPATITIS C
     Route: 048
     Dates: start: 20140516

REACTIONS (3)
  - White blood cell count decreased [Not Recovered/Not Resolved]
  - Neutrophil count decreased [Recovering/Resolving]
  - Platelet count decreased [Not Recovered/Not Resolved]
